FAERS Safety Report 4438516-4 (Version None)
Quarter: 2004Q3

REPORT INFORMATION
  Report Type: 
  Country: None (occurrence: None)
  Receive Date: 20040831
  Receipt Date: 20030310
  Transmission Date: 20050211
  Serious: Yes (Hospitalization, Disabling)
  Sender: FDA-Public Use
  Company Number: US-MERCK-0303USA00888

PATIENT
  Age: 34 Year
  Sex: Female

DRUGS (5)
  1. DURAGESIC [Concomitant]
     Indication: BACK PAIN
     Route: 061
     Dates: start: 20010702, end: 20011031
  2. METHADONE HCL [Concomitant]
     Route: 048
     Dates: start: 20011030, end: 20011210
  3. OXYCODONE [Concomitant]
     Route: 048
     Dates: start: 20011213, end: 20020101
  4. VIOXX [Suspect]
     Indication: HEADACHE
     Route: 048
     Dates: start: 20010701, end: 20020101
  5. VIOXX [Suspect]
     Indication: FIBROMYALGIA
     Route: 048
     Dates: start: 20010701, end: 20020101

REACTIONS (9)
  - ARTHROPOD BITE [None]
  - BACK PAIN [None]
  - CELLULITIS [None]
  - HEADACHE [None]
  - MENINGITIS VIRAL [None]
  - MUSCLE TWITCHING [None]
  - NAUSEA [None]
  - PAIN [None]
  - TREMOR [None]
